FAERS Safety Report 18466927 (Version 1)
Quarter: 2020Q4

REPORT INFORMATION
  Report Type: Spontaneous
  Country: US (occurrence: US)
  Receive Date: 20201104
  Receipt Date: 20201104
  Transmission Date: 20210114
  Serious: Yes (Hospitalization)
  Sender: FDA-Public Use
  Company Number: None

PATIENT
  Age: 73 Year
  Sex: Male
  Weight: 111 kg

DRUGS (9)
  1. AZACITIDINE. [Suspect]
     Active Substance: AZACITIDINE
     Indication: CHRONIC MYELOMONOCYTIC LEUKAEMIA
     Dosage: ?          OTHER FREQUENCY:DAYS 1-7/28C;?
     Route: 042
     Dates: start: 20200603, end: 20201030
  2. ASCORBIC ACID. [Suspect]
     Active Substance: ASCORBIC ACID
     Indication: CHRONIC MYELOMONOCYTIC LEUKAEMIA
     Route: 048
     Dates: start: 20200731, end: 20201030
  3. ATORVASTATIN [Concomitant]
     Active Substance: ATORVASTATIN
  4. HYDREA [Concomitant]
     Active Substance: HYDROXYUREA
  5. FERROUS SULFATE. [Concomitant]
     Active Substance: FERROUS SULFATE
  6. LORSATAN [Concomitant]
  7. METFORMIN [Concomitant]
     Active Substance: METFORMIN HYDROCHLORIDE
  8. ANORO ELIPPTA [Concomitant]
  9. DILTIAZEM CD [Concomitant]
     Active Substance: DILTIAZEM

REACTIONS (7)
  - Leukocytosis [None]
  - Acute myeloid leukaemia [None]
  - Tumour lysis syndrome [None]
  - Acute kidney injury [None]
  - Dyspnoea [None]
  - Chronic myelomonocytic leukaemia [None]
  - Asthenia [None]

NARRATIVE: CASE EVENT DATE: 20201030
